FAERS Safety Report 25949443 (Version 1)
Quarter: 2025Q4

REPORT INFORMATION
  Report Type: Spontaneous
  Country: US (occurrence: US)
  Receive Date: 20251022
  Receipt Date: 20251022
  Transmission Date: 20260117
  Serious: Yes (Hospitalization)
  Sender: LUPIN
  Company Number: US-LUPIN PHARMACEUTICALS INC.-2025-09446

PATIENT
  Age: 26 Year
  Sex: Female

DRUGS (16)
  1. LEVETIRACETAM [Suspect]
     Active Substance: LEVETIRACETAM
     Indication: Petit mal epilepsy
     Dosage: UNK
     Route: 065
  2. BRIVARACETAM [Suspect]
     Active Substance: BRIVARACETAM
     Indication: Idiopathic generalised epilepsy
     Dosage: UNK
     Route: 065
  3. CLOBAZAM [Interacting]
     Active Substance: CLOBAZAM
     Indication: Idiopathic generalised epilepsy
     Dosage: 10 MILLIGRAM, HS (INITIAL DOSE NIGHTLY)
     Route: 065
     Dates: start: 2023, end: 2023
  4. CLOBAZAM [Interacting]
     Active Substance: CLOBAZAM
     Dosage: 20 MILLIGRAM, HS (NIGHTLY; 2 WEEKS POST-INITIAL DOSE)
     Route: 065
  5. CLOBAZAM [Interacting]
     Active Substance: CLOBAZAM
     Dosage: 30 MILLIGRAM, HS (NIGHTLY; 4 WEEKS POST-INITIAL DOSE)
     Route: 065
  6. CLOBAZAM [Interacting]
     Active Substance: CLOBAZAM
     Dosage: 40 MILLIGRAM, HS (NIGHTLY; 6 WEEKS POST-INITIAL DOSE)
     Route: 065
  7. CLOBAZAM [Interacting]
     Active Substance: CLOBAZAM
     Dosage: 30 MILLIGRAM, HS (NIGHTLY; 10 WEEKS POST-INITIAL DOSE)
     Route: 065
  8. CLOBAZAM [Interacting]
     Active Substance: CLOBAZAM
     Dosage: 20 MILLIGRAM, HS (NIGHTLY; 12 WEEKS POST-INITIAL DOSE, 20 MG)
     Route: 065
  9. LAMOTRIGINE [Suspect]
     Active Substance: LAMOTRIGINE
     Indication: Idiopathic generalised epilepsy
     Dosage: 700 MILLIGRAM, QD
     Route: 065
  10. CANNABIDIOL [Suspect]
     Active Substance: CANNABIDIOL
     Indication: Idiopathic generalised epilepsy
     Dosage: UNK
     Route: 065
  11. ETHOSUXIMIDE [Suspect]
     Active Substance: ETHOSUXIMIDE
     Indication: Petit mal epilepsy
     Dosage: UNK
     Route: 065
  12. LACOSAMIDE [Suspect]
     Active Substance: LACOSAMIDE
     Indication: Idiopathic generalised epilepsy
     Dosage: UNK
     Route: 065
  13. PERAMPANEL [Suspect]
     Active Substance: PERAMPANEL
     Indication: Idiopathic generalised epilepsy
     Dosage: UNK
     Route: 065
  14. VALPROATE [Suspect]
     Active Substance: VALPROIC ACID
     Indication: Idiopathic generalised epilepsy
     Dosage: UNK
     Route: 065
  15. ZONISAMIDE [Suspect]
     Active Substance: ZONISAMIDE
     Indication: Idiopathic generalised epilepsy
     Dosage: UNK
     Route: 065
  16. CENOBAMATE [Interacting]
     Active Substance: CENOBAMATE
     Indication: Idiopathic generalised epilepsy
     Dosage: 200 MILLIGRAM, HS (NIGHTLY)
     Route: 065

REACTIONS (5)
  - Somnolence [Recovered/Resolved]
  - Condition aggravated [Unknown]
  - Drug ineffective for unapproved indication [Unknown]
  - Drug interaction [Unknown]
  - Off label use [Unknown]

NARRATIVE: CASE EVENT DATE: 20230101
